FAERS Safety Report 8999833 (Version 1)
Quarter: 2013Q1

REPORT INFORMATION
  Report Type: Spontaneous
  Country: FR (occurrence: FR)
  Receive Date: 20130102
  Receipt Date: 20130102
  Transmission Date: 20140127
  Serious: Yes (Life-Threatening)
  Sender: FDA-Public Use
  Company Number: FR-JNJFOC-20121211481

PATIENT
  Age: 61 Year
  Sex: Female

DRUGS (9)
  1. REMICADE [Suspect]
     Indication: CROHN^S DISEASE
     Route: 042
     Dates: start: 20120712
  2. REMICADE [Suspect]
     Indication: CROHN^S DISEASE
     Route: 042
     Dates: start: 20120906
  3. REMICADE [Suspect]
     Indication: CROHN^S DISEASE
     Route: 042
     Dates: start: 200909
  4. LANTUS [Concomitant]
     Route: 065
  5. HUMALOG [Concomitant]
     Dosage: 8 DF IN THE MORNING, MIDDAY AND 7 DT IN THE EVENING.
     Route: 065
  6. ELISOR [Concomitant]
     Dosage: 1 DF AT EVENING
     Route: 065
  7. OMEPRAZOLE [Concomitant]
     Dosage: 1 DF
     Route: 065
  8. HYDROCORTISONE [Concomitant]
     Indication: PREMEDICATION
     Route: 065
  9. ATARAX [Concomitant]
     Indication: PREMEDICATION
     Route: 065

REACTIONS (7)
  - Anaphylactic shock [Recovered/Resolved]
  - Throat irritation [Recovered/Resolved]
  - Infusion related reaction [Recovered/Resolved]
  - Hypotension [Recovered/Resolved]
  - Bradycardia [Recovered/Resolved]
  - Dizziness [Recovered/Resolved]
  - Oxygen saturation decreased [Recovered/Resolved]
